FAERS Safety Report 16296715 (Version 1)
Quarter: 2019Q2

REPORT INFORMATION
  Report Type: Spontaneous
  Country: US (occurrence: US)
  Receive Date: 20190404
  Receipt Date: 20190404
  Transmission Date: 20190711
  Serious: No
  Sender: FDA-Public Use
  Company Number: None

PATIENT
  Age: 80 Year
  Sex: Female
  Weight: 92.99 kg

DRUGS (1)
  1. SCANDONEST 2%/ MEPIVOCAINE [Suspect]
     Active Substance: MEPIVACAINE HYDROCHLORIDE
     Indication: DENTAL CLEANING
     Dosage: ?          OTHER DOSE:3 CARPS (2%);?
     Dates: start: 20190312

REACTIONS (2)
  - Blood pressure increased [None]
  - Palpitations [None]

NARRATIVE: CASE EVENT DATE: 20190312
